FAERS Safety Report 23089107 (Version 1)
Quarter: 2023Q4

REPORT INFORMATION
  Report Type: Spontaneous
  Country: RU (occurrence: None)
  Receive Date: 20231020
  Receipt Date: 20231020
  Transmission Date: 20240109
  Serious: Yes (Other)
  Sender: FDA-Public Use
  Company Number: RU-ROCHE-3124320

PATIENT
  Age: 63 Year
  Sex: Male
  Weight: 53.5 kg

DRUGS (2)
  1. TECENTRIQ [Suspect]
     Active Substance: ATEZOLIZUMAB
     Indication: Hepatocellular carcinoma
     Route: 041
     Dates: start: 20210428
  2. BEVACIZUMAB [Suspect]
     Active Substance: BEVACIZUMAB
     Indication: Hepatocellular carcinoma
     Route: 042
     Dates: start: 20210428

REACTIONS (4)
  - Hepatomegaly [Unknown]
  - Hepatic mass [Unknown]
  - Pyrexia [Unknown]
  - Immune-mediated enterocolitis [Unknown]
